FAERS Safety Report 21852539 (Version 1)
Quarter: 2023Q1

REPORT INFORMATION
  Report Type: Report from Study
  Country: CA (occurrence: CA)
  Receive Date: 20230112
  Receipt Date: 20230112
  Transmission Date: 20230418
  Serious: Yes (Other)
  Sender: FDA-Public Use
  Company Number: CA-002147023-NVSC2023CA003911

PATIENT
  Sex: Male
  Weight: 96 kg

DRUGS (2)
  1. PIRFENIDONE [Suspect]
     Active Substance: PIRFENIDONE
     Indication: Idiopathic pulmonary fibrosis
     Dosage: UNK UNK, TID
     Route: 048
  2. METHOTREXATE [Suspect]
     Active Substance: METHOTREXATE
     Indication: Product used for unknown indication
     Dosage: UNK
     Route: 065

REACTIONS (10)
  - Pulmonary toxicity [Unknown]
  - Arteriosclerosis coronary artery [Unknown]
  - Pulmonary fibrosis [Unknown]
  - Bronchiectasis [Not Recovered/Not Resolved]
  - Interstitial lung disease [Unknown]
  - Upper respiratory tract infection [Unknown]
  - Rhinorrhoea [Unknown]
  - Cough [Unknown]
  - Restrictive pulmonary disease [Unknown]
  - Aortic dilatation [Unknown]
